FAERS Safety Report 6215641-9 (Version None)
Quarter: 2009Q2

REPORT INFORMATION
  Report Type: 
  Country: None (occurrence: None)
  Receive Date: 20090603
  Receipt Date: 20090603
  Transmission Date: 20091009
  Serious: No
  Sender: FDA-Public Use
  Company Number: None

PATIENT
  Age: 80 Year
  Sex: Male
  Weight: 96.1626 kg

DRUGS (1)
  1. PROQUIN XR [Suspect]
     Dosage: 1 BLUE CAPSULE
     Dates: start: 20090506

REACTIONS (3)
  - PRURITUS [None]
  - RASH GENERALISED [None]
  - RASH PAPULAR [None]
